FAERS Safety Report 7009503-7 (Version None)
Quarter: 2010Q3

REPORT INFORMATION
  Report Type: 
  Country: None (occurrence: None)
  Receive Date: 20100907
  Receipt Date: 20100603
  Transmission Date: 20110219
  Serious: Yes (Other)
  Sender: FDA-Public Use
  Company Number: 2010064351

PATIENT
  Age: 63 Year
  Sex: Male
  Weight: 72.6 kg

DRUGS (5)
  1. CAVERJECT [Suspect]
     Indication: ERECTILE DYSFUNCTION
     Dosage: 20 UG AS NEEDED INTRACAVERNOUS
     Route: 017
  2. ALPROSTADIL [Suspect]
     Indication: ERECTILE DYSFUNCTION
  3. CIALIS [Suspect]
     Dosage: UNK ORAL
     Route: 048
  4. LEVITRA [Suspect]
     Dosage: UNK ORAL
     Route: 048
  5. PAXIL (PAROZETINE HYDROCHLORIDE) [Concomitant]

REACTIONS (2)
  - DRUG INEFFECTIVE [None]
  - PAINFUL ERECTION [None]
